FAERS Safety Report 10969079 (Version 1)
Quarter: 2015Q1

REPORT INFORMATION
  Report Type: Spontaneous
  Country: JP (occurrence: JP)
  Receive Date: 20150331
  Receipt Date: 20150331
  Transmission Date: 20150721
  Serious: Yes (Hospitalization, Other)
  Sender: FDA-Public Use
  Company Number: JP-PFIZER INC-2015108738

PATIENT
  Sex: Male
  Weight: 60 kg

DRUGS (2)
  1. LIPITOR [Suspect]
     Active Substance: ATORVASTATIN CALCIUM
     Dosage: UNK,(TUESDAY AND THURSDAY)
     Route: 048
  2. BEZATOL [Concomitant]
     Active Substance: BEZAFIBRATE
     Dosage: UNK, (MONDAY, WEDNESDAY AND FRIDAY)

REACTIONS (2)
  - Colon cancer metastatic [Unknown]
  - Intentional product misuse [Unknown]
